FAERS Safety Report 25761535 (Version 1)
Quarter: 2025Q3

REPORT INFORMATION
  Report Type: Spontaneous
  Country: US (occurrence: None)
  Receive Date: 20250903
  Receipt Date: 20250903
  Transmission Date: 20251020
  Serious: Yes (Other)
  Sender: FDA-CTU
  Company Number: None

PATIENT
  Age: 69 Year
  Sex: Male
  Weight: 83.9 kg

DRUGS (1)
  1. OXYCODONE [Suspect]
     Active Substance: OXYCODONE
     Route: 048
     Dates: start: 20231006

REACTIONS (5)
  - Abdominal pain [None]
  - Constipation [None]
  - Faecaloma [None]
  - Colitis [None]
  - Faecalith [None]

NARRATIVE: CASE EVENT DATE: 20250626
